FAERS Safety Report 25103610 (Version 1)
Quarter: 2025Q1

REPORT INFORMATION
  Report Type: Spontaneous
  Country: US (occurrence: US)
  Receive Date: 20250321
  Receipt Date: 20250321
  Transmission Date: 20250408
  Serious: Yes (Hospitalization, Other)
  Sender: UNICHEM
  Company Number: US-UNICHEM LABORATORIES LIMITED-UNI-2025-US-001474

PATIENT

DRUGS (3)
  1. METFORMIN [Suspect]
     Active Substance: METFORMIN HYDROCHLORIDE
     Indication: Type 2 diabetes mellitus
     Route: 065
  2. INSULIN NOS [Concomitant]
     Active Substance: INSULIN NOS
     Indication: Euglycaemic diabetic ketoacidosis
     Route: 040
  3. PHENYLEPHRINE [Concomitant]
     Active Substance: PHENYLEPHRINE
     Indication: Product used for unknown indication
     Route: 065

REACTIONS (2)
  - Hyperglycaemia [Recovered/Resolved]
  - Lactic acidosis [Recovered/Resolved]
